FAERS Safety Report 5164290-2 (Version None)
Quarter: 2006Q4

REPORT INFORMATION
  Report Type: 
  Country: None (occurrence: None)
  Receive Date: 20061205
  Receipt Date: 20061129
  Transmission Date: 20070319
  Serious: Yes (Hospitalization, Other)
  Sender: FDA-Public Use
  Company Number: US-JNJFOC-20061006034

PATIENT
  Sex: Female
  Weight: 73.03 kg

DRUGS (14)
  1. REMICADE [Suspect]
     Dosage: 5MG/KG
     Route: 042
  2. REMICADE [Suspect]
     Indication: RHEUMATOID ARTHRITIS
     Route: 042
  3. DYAZIDE [Concomitant]
  4. IMIPRAMINE [Concomitant]
  5. LACTULOSE [Concomitant]
  6. VICODIN [Concomitant]
  7. LASIX [Concomitant]
  8. POTASSIUM SUPPLEMENT [Concomitant]
  9. SPIRONOLACTONE [Concomitant]
  10. RELAFEN [Concomitant]
  11. RITUXAN [Concomitant]
  12. AMBIEN [Concomitant]
  13. OXYCODONE HCL [Concomitant]
     Indication: PAIN
  14. XIFAXAN [Concomitant]

REACTIONS (4)
  - HEPATOTOXICITY [None]
  - PETECHIAE [None]
  - PNEUMONIA [None]
  - THROMBOCYTOPENIA [None]
